FAERS Safety Report 15343208 (Version 2)
Quarter: 2018Q3

REPORT INFORMATION
  Report Type: Report from Study
  Country: US (occurrence: US)
  Receive Date: 20180903
  Receipt Date: 20180907
  Transmission Date: 20181010
  Serious: Yes (Other)
  Sender: FDA-Public Use
  Company Number: US-ROCHE-2175100

PATIENT
  Age: 43 Year
  Sex: Female
  Weight: 60.84 kg

DRUGS (8)
  1. ATIVAN [Concomitant]
     Active Substance: LORAZEPAM
     Indication: MUSCLE SPASMS
     Dosage: YES
     Route: 065
  2. ATIVAN [Concomitant]
     Active Substance: LORAZEPAM
     Indication: MUSCLE SPASMS
  3. OCREVUS [Suspect]
     Active Substance: OCRELIZUMAB
     Indication: MULTIPLE SCLEROSIS
     Dosage: STRONGEST DOSE ;ONGOING: NO
     Route: 065
     Dates: start: 2017
  4. ZOFRAN [Concomitant]
     Active Substance: ONDANSETRON HYDROCHLORIDE
     Indication: NAUSEA
     Dosage: YES
     Route: 065
  5. RITUXAN [Suspect]
     Active Substance: RITUXIMAB
     Indication: MULTIPLE SCLEROSIS
     Dosage: ONGOING: NO
     Route: 065
  6. LEVEMIR [Concomitant]
     Active Substance: INSULIN DETEMIR
     Indication: DIABETES MELLITUS
     Dosage: YES
     Route: 065
  7. OMEPRAZOLE. [Concomitant]
     Active Substance: OMEPRAZOLE
     Indication: NAUSEA
     Dosage: YES
     Route: 065
  8. OCREVUS [Suspect]
     Active Substance: OCRELIZUMAB
     Dosage: ONGOING: NO
     Route: 065
     Dates: start: 2017

REACTIONS (9)
  - Central nervous system lesion [Unknown]
  - Pain [Unknown]
  - Nausea [Unknown]
  - Weight decreased [Unknown]
  - Off label use [Unknown]
  - Fatigue [Unknown]
  - Intentional product use issue [Unknown]
  - Multiple sclerosis relapse [Not Recovered/Not Resolved]
  - Asthenia [Unknown]

NARRATIVE: CASE EVENT DATE: 201807
